FAERS Safety Report 18560197 (Version 4)
Quarter: 2021Q4

REPORT INFORMATION
  Report Type: Report from Study
  Country: US (occurrence: US)
  Receive Date: 20201130
  Receipt Date: 20211005
  Transmission Date: 20220303
  Serious: Yes (Other)
  Sender: FDA-Public Use
  Company Number: NVSC2020US319135

PATIENT
  Sex: Male

DRUGS (1)
  1. ENTRESTO [Suspect]
     Active Substance: SACUBITRIL\VALSARTAN
     Indication: Product used for unknown indication
     Dosage: UNK
     Route: 065

REACTIONS (10)
  - Renal failure [Unknown]
  - Foot deformity [Unknown]
  - Foot fracture [Unknown]
  - Blood potassium increased [Unknown]
  - Pallor [Unknown]
  - Influenza like illness [Unknown]
  - Pain [Unknown]
  - Secretion discharge [Unknown]
  - Nasopharyngitis [Unknown]
  - Fatigue [Unknown]
